FAERS Safety Report 7392545-X (Version None)
Quarter: 2011Q2

REPORT INFORMATION
  Report Type: 
  Country: None (occurrence: None)
  Receive Date: 20110404
  Receipt Date: 20110322
  Transmission Date: 20111010
  Serious: Yes (Other)
  Sender: FDA-Public Use
  Company Number: DE-AMGEN-DEUCT2011015640

PATIENT

DRUGS (1)
  1. CINACALCET HYDROCHLORIDE [Suspect]
     Indication: HYPERCALCAEMIA
     Dosage: UNK UNK, QD
     Dates: start: 20050601, end: 20050801

REACTIONS (10)
  - POST PROCEDURAL COMPLICATION [None]
  - CORONARY ARTERY BYPASS [None]
  - RENAL IMPAIRMENT [None]
  - BLOOD CREATININE INCREASED [None]
  - ILEUS [None]
  - DIALYSIS [None]
  - MYOCARDIAL INFARCTION [None]
  - TRANSPLANT FAILURE [None]
  - SEPSIS [None]
  - GASTROINTESTINAL DISORDER [None]
